FAERS Safety Report 6790265-3 (Version None)
Quarter: 2010Q2

REPORT INFORMATION
  Report Type: 
  Country: None (occurrence: None)
  Receive Date: 20100624
  Receipt Date: 20100621
  Transmission Date: 20101027
  Serious: Yes (Hospitalization)
  Sender: FDA-Public Use
  Company Number: ES-BRISTOL-MYERS SQUIBB COMPANY-13415898

PATIENT
  Age: 77 Year
  Sex: Male
  Weight: 74 kg

DRUGS (7)
  1. PACLITAXEL [Suspect]
     Indication: NON-SMALL CELL LUNG CANCER
     Dosage: 1104MG,3CYCLE:LAST CYCLE:31MAY2006
     Route: 042
     Dates: start: 20060411
  2. CARBOPLATIN [Suspect]
     Indication: NON-SMALL CELL LUNG CANCER
     Dosage: 1413MG,3CYCLE:LAST CYCLE:31MAY2006
     Route: 042
     Dates: start: 20060411
  3. IBUPROFEN [Concomitant]
     Dates: start: 20060404
  4. TRAMADOL HCL [Concomitant]
     Dates: start: 20060315
  5. MORPHINE [Concomitant]
     Route: 048
     Dates: start: 20060304
  6. DARBEPOETIN ALFA [Concomitant]
     Route: 058
     Dates: start: 20060510
  7. METOCLOPRAMIDE [Concomitant]
     Route: 048
     Dates: start: 20060411

REACTIONS (2)
  - BLOOD CREATININE INCREASED [None]
  - HYPERGLYCAEMIA [None]
